FAERS Safety Report 5235118-7 (Version None)
Quarter: 2007Q2

REPORT INFORMATION
  Report Type: 
  Country: None (occurrence: None)
  Receive Date: 20070207
  Receipt Date: 20070122
  Transmission Date: 20071010
  Serious: Yes (Hospitalization)
  Sender: FDA-Public Use
  Company Number: 14307

PATIENT
  Age: 71 Year
  Sex: Female

DRUGS (10)
  1. PACLITAXEL [Suspect]
     Indication: OVARIAN EPITHELIAL CANCER RECURRENT
  2. OMEPRAZOLE [Concomitant]
  3. FUROSEMIDE [Concomitant]
  4. PREDNISONE 50MG TAB [Concomitant]
  5. SALBUTAMOL [Concomitant]
  6. IPRATROPIUM BROMIDE [Concomitant]
  7. BUDESONIDE [Concomitant]
  8. FENTANYL [Concomitant]
  9. LORAZEPAM [Concomitant]
  10. CARBOPLATIN [Suspect]

REACTIONS (3)
  - NEUTROPENIA [None]
  - RESPIRATORY FAILURE [None]
  - RESPIRATORY TRACT INFECTION [None]
